FAERS Safety Report 25666015 (Version 1)
Quarter: 2025Q3

REPORT INFORMATION
  Report Type: Spontaneous
  Country: US (occurrence: US)
  Receive Date: 20250811
  Receipt Date: 20250811
  Transmission Date: 20251020
  Serious: Yes (Other)
  Sender: AMGEN
  Company Number: US-AMGEN-USASP2025154702

PATIENT
  Sex: Female

DRUGS (7)
  1. TEPEZZA [Suspect]
     Active Substance: TEPROTUMUMAB-TRBW
     Indication: Product used for unknown indication
     Route: 065
  2. TEPEZZA [Suspect]
     Active Substance: TEPROTUMUMAB-TRBW
     Route: 065
  3. PREDNISONE [Suspect]
     Active Substance: PREDNISONE
     Indication: Product used for unknown indication
     Route: 065
  4. ALPRAZOLAM [Concomitant]
     Active Substance: ALPRAZOLAM
  5. SOLU-MEDROL [Concomitant]
     Active Substance: METHYLPREDNISOLONE SODIUM SUCCINATE
     Route: 040
  6. METHIMAZOLE [Concomitant]
     Active Substance: METHIMAZOLE
  7. NORETHINDRONE [Concomitant]
     Active Substance: NORETHINDRONE

REACTIONS (17)
  - Endocrine ophthalmopathy [Unknown]
  - Hypoacusis [Not Recovered/Not Resolved]
  - Ocular hyperaemia [Unknown]
  - Diplopia [Unknown]
  - Muscle spasms [Unknown]
  - Alopecia [Unknown]
  - Foreign body sensation in eyes [Unknown]
  - Eye pain [Unknown]
  - Ocular discomfort [Unknown]
  - Lacrimation increased [Unknown]
  - Strabismus [Unknown]
  - Vitreous floaters [Recovering/Resolving]
  - Headache [Unknown]
  - Photopsia [Unknown]
  - Muscle spasms [Not Recovered/Not Resolved]
  - Alopecia [Not Recovered/Not Resolved]
  - Eye pruritus [Unknown]
